FAERS Safety Report 9954828 (Version 1)
Quarter: 2014Q1

REPORT INFORMATION
  Report Type: Spontaneous
  Country: US (occurrence: US)
  Receive Date: 20140304
  Receipt Date: 20140304
  Transmission Date: 20141002
  Serious: No
  Sender: FDA-Public Use
  Company Number: US-ABBVIE-13P-163-1071781-00

PATIENT
  Age: 41 Year
  Sex: Female
  Weight: 61.29 kg

DRUGS (3)
  1. HUMIRA [Suspect]
     Indication: CROHN^S DISEASE
     Dosage: 1ST LOADING DOSE
     Route: 058
     Dates: start: 20130318, end: 20130318
  2. HUMIRA [Suspect]
     Route: 058
     Dates: start: 2013
  3. PREDNISONE [Concomitant]
     Indication: PRODUCT USED FOR UNKNOWN INDICATION
     Dates: end: 201303

REACTIONS (3)
  - Pollakiuria [Unknown]
  - Hyperhidrosis [Unknown]
  - Nervousness [Unknown]
